FAERS Safety Report 24249116 (Version 2)
Quarter: 2024Q3

REPORT INFORMATION
  Report Type: Spontaneous
  Country: CN (occurrence: CN)
  Receive Date: 20240826
  Receipt Date: 20240904
  Transmission Date: 20241017
  Serious: Yes (Life-Threatening)
  Sender: NOVARTIS
  Company Number: CN-002147023-NVSC2024CN171201

PATIENT
  Age: 88 Year
  Sex: Female

DRUGS (2)
  1. RIBOCICLIB [Suspect]
     Active Substance: RIBOCICLIB
     Indication: Neoplasm
     Dosage: 600 MG, QD
     Route: 048
     Dates: start: 20240722, end: 20240811
  2. LETROZOLE [Suspect]
     Active Substance: LETROZOLE
     Indication: Neoplasm
     Dosage: 2.5 MG, QD
     Route: 048
     Dates: start: 20240722, end: 20240820

REACTIONS (4)
  - Granulocyte count decreased [Recovered/Resolved]
  - Platelet count decreased [Unknown]
  - White blood cell count decreased [Unknown]
  - Haemoglobin decreased [Unknown]

NARRATIVE: CASE EVENT DATE: 20240805
